FAERS Safety Report 8594975-7 (Version None)
Quarter: 2012Q3

REPORT INFORMATION
  Report Type: 
  Country: None (occurrence: None)
  Receive Date: 20120806
  Receipt Date: 20120806
  Transmission Date: 20120928
  Serious: Yes (Life-Threatening, Hospitalization, Other)
  Sender: FDA-Public Use
  Company Number: None

PATIENT
  Sex: Male
  Weight: 107.5025 kg

DRUGS (1)
  1. BUPROPRION HCL [Suspect]
     Indication: ARTHRALGIA
     Dosage: 1 DAILY  150 MG
     Dates: start: 20120521

REACTIONS (2)
  - MALAISE [None]
  - APPARENT DEATH [None]
